FAERS Safety Report 7719890-X (Version None)
Quarter: 2011Q3

REPORT INFORMATION
  Report Type: 
  Country: None (occurrence: None)
  Receive Date: 20110831
  Receipt Date: 20110822
  Transmission Date: 20111222
  Serious: No
  Sender: FDA-Public Use
  Company Number: US-BIOGENIDEC-2011BI032413

PATIENT
  Age: 35 Year
  Sex: Female

DRUGS (4)
  1. LORTAB [Concomitant]
     Indication: MIGRAINE
  2. TOPAMAX [Concomitant]
     Indication: MIGRAINE
  3. TYSABRI [Suspect]
     Indication: MULTIPLE SCLEROSIS
     Route: 042
     Dates: start: 20110630
  4. METHADONE HCL [Concomitant]
     Indication: MIGRAINE

REACTIONS (6)
  - MUSCULAR WEAKNESS [None]
  - ALOPECIA [None]
  - PAIN IN EXTREMITY [None]
  - BLOOD PRESSURE DECREASED [None]
  - INSOMNIA [None]
  - HEADACHE [None]
